FAERS Safety Report 18030869 (Version 1)
Quarter: 2020Q3

REPORT INFORMATION
  Report Type: Spontaneous
  Country: US (occurrence: US)
  Receive Date: 20200715
  Receipt Date: 20200715
  Transmission Date: 20201103
  Serious: Yes (Other)
  Sender: FDA-Public Use
  Company Number: US-BAXTER-2020BAX014249

PATIENT
  Age: 33 Year
  Sex: Female

DRUGS (1)
  1. PENICILLIN G POTASSIUM INJECTION, USP [Suspect]
     Active Substance: PENICILLIN G POTASSIUM
     Indication: PROPHYLAXIS
     Dosage: PENICILLIN G POTASSIUM 3 MILLION UNITS PREMIX IN 50 ML?2 DOSES
     Route: 042
     Dates: start: 20200629, end: 20200629

REACTIONS (2)
  - Haemorrhage [Unknown]
  - Infusion site pain [Recovered/Resolved]

NARRATIVE: CASE EVENT DATE: 20200629
